FAERS Safety Report 7610483-1 (Version None)
Quarter: 2011Q3

REPORT INFORMATION
  Report Type: 
  Country: None (occurrence: None)
  Receive Date: 20110715
  Receipt Date: 20091120
  Transmission Date: 20111222
  Serious: Yes (Disabling, Other)
  Sender: FDA-Public Use
  Company Number: US-BAYER-200940891NA

PATIENT
  Age: 71 Year
  Sex: Male
  Weight: 104 kg

DRUGS (21)
  1. TRASYLOL [Suspect]
     Indication: CORONARY ARTERY BYPASS
     Dosage: 1 ML, ONCE, TEST DOSE
     Route: 042
     Dates: start: 20031212
  2. LABETALOL HCL [Concomitant]
     Dosage: 200 MG, BID
  3. LASIX [Concomitant]
     Dosage: 80 MG, QD
  4. NORVASC [Concomitant]
     Dosage: 5 MG, QD
  5. PLAVIX [Concomitant]
  6. COZAAR [Concomitant]
     Dosage: 100 MG, QD
  7. VERSED [Concomitant]
     Route: 042
  8. FENTANYL [Concomitant]
     Route: 042
  9. ADVAIR DISKUS 100/50 [Concomitant]
     Dosage: 250/50 TWICE DAILY
  10. CALCIUM CHLORIDE [Concomitant]
     Dosage: 1.0 G, UNK
  11. RED BLOOD CELLS [Concomitant]
     Dosage: 6 U, ONCE
     Route: 042
     Dates: start: 20031212
  12. TOPROL-XL [Concomitant]
     Dosage: 50 MG, QD
  13. TRASYLOL [Suspect]
     Dosage: 200ML OVER 1 HOUR, LOADING DOSE
     Route: 042
     Dates: start: 20031212
  14. ACETYLSALICYLIC ACID SRT [Concomitant]
  15. ZOCOR [Concomitant]
     Dosage: 80 MG, QD
  16. MORPHINE [Concomitant]
     Route: 042
  17. ZAROXOLYN [Concomitant]
     Dosage: 5 MG, QD
  18. HEPARIN [Concomitant]
     Route: 042
  19. TRASYLOL [Suspect]
     Dosage: 50ML OVER 4 HOURS
     Route: 042
     Dates: start: 20031212
  20. ALBUMIN (HUMAN) [Concomitant]
     Dosage: UNK
     Route: 042
     Dates: start: 20031212
  21. CYCLOPHOSPHAMIDE [Concomitant]
     Dosage: 50 MG, QD

REACTIONS (11)
  - INJURY [None]
  - RENAL INJURY [None]
  - RENAL FAILURE [None]
  - PAIN [None]
  - ANXIETY [None]
  - FEAR [None]
  - DEPRESSION [None]
  - UNEVALUABLE EVENT [None]
  - MULTI-ORGAN FAILURE [None]
  - DISABILITY [None]
  - ANHEDONIA [None]
